FAERS Safety Report 8403370-2 (Version None)
Quarter: 2012Q2

REPORT INFORMATION
  Report Type: 
  Country: None (occurrence: None)
  Receive Date: 20120601
  Receipt Date: 20120530
  Transmission Date: 20120825
  Serious: No
  Sender: FDA-Public Use
  Company Number: US-PFIZER INC-2012038365

PATIENT
  Sex: Male
  Weight: 118 kg

DRUGS (17)
  1. LOVENOX [Concomitant]
     Dosage: 1.5 MG, UNK
     Route: 058
     Dates: start: 20110203
  2. BUPROPION HYDROCHLORIDE [Concomitant]
     Dosage: 150 MG, 1X/DAY
     Route: 048
     Dates: start: 20110406
  3. MULTI-VITAMINS [Concomitant]
     Dosage: UNK, 1X'DAY
     Route: 048
     Dates: start: 20120302
  4. SIMVASTATIN [Concomitant]
     Dosage: 40 MG, 1X/DAY
     Route: 048
     Dates: start: 20110406
  5. TORISEL [Suspect]
     Indication: RENAL CELL CARCINOMA
     Dosage: 25 MG, IV Q WK X 16 WKS
     Route: 042
     Dates: start: 20111109, end: 20120420
  6. VITAMIN B-12 [Concomitant]
     Dosage: 1000 UG, 1X/DAY
     Route: 048
     Dates: start: 20110406
  7. ARIXTRA [Concomitant]
     Dosage: 7.5 MG, 3X/DAY
     Route: 058
     Dates: start: 20110202, end: 20110202
  8. LISINOPRIL [Concomitant]
     Dosage: 40 MG, 1X/DAY
     Route: 048
     Dates: start: 20110406
  9. OMEPRAZOLE [Concomitant]
     Dosage: 20 MG, 1X/DAY
     Route: 048
     Dates: start: 20110406
  10. BENADRYL [Concomitant]
     Dosage: 50 MG, UNK
     Route: 042
  11. PROCHLORPERAZINE MALEATE [Concomitant]
     Dosage: 5 MG, UNK
  12. ARIPIPRAZOLE [Concomitant]
     Dosage: 2 MG, 1X/DAY
     Route: 048
     Dates: start: 20120126
  13. CITALOPRAM [Concomitant]
     Dosage: 40 MG, 1X/DAY
     Route: 048
     Dates: start: 20110406
  14. SOLU-MEDROL [Concomitant]
     Dosage: 20 MG, UNK
     Route: 042
  15. LOVENOX [Concomitant]
     Dosage: 1.5 MG/KG, UNK
     Route: 058
     Dates: start: 20110202, end: 20110202
  16. GLIMEPIRIDE [Concomitant]
     Dosage: 1 MG, 1X/DAY
     Route: 048
     Dates: start: 20110427
  17. TORISEL [Suspect]
     Dosage: 25 MG, WEEKLY
     Route: 042
     Dates: start: 20111109

REACTIONS (7)
  - WEIGHT DECREASED [None]
  - RASH ERYTHEMATOUS [None]
  - DERMATITIS ACNEIFORM [None]
  - URTICARIA [None]
  - DECREASED APPETITE [None]
  - PRURITUS [None]
  - EYE ALLERGY [None]
